FAERS Safety Report 7841719-X (Version None)
Quarter: 2011Q4

REPORT INFORMATION
  Report Type: 
  Country: None (occurrence: None)
  Receive Date: 20111025
  Receipt Date: 20111014
  Transmission Date: 20120403
  Serious: Yes (Hospitalization)
  Sender: FDA-Public Use
  Company Number: CA-JNJFOC-20111007925

PATIENT
  Sex: Male
  Weight: 122.7 kg

DRUGS (1)
  1. REMICADE [Suspect]
     Indication: COLITIS ULCERATIVE
     Route: 042
     Dates: start: 20090429

REACTIONS (2)
  - DIARRHOEA [None]
  - BLOOD GLUCOSE DECREASED [None]
